FAERS Safety Report 6135595-3 (Version None)
Quarter: 2009Q1

REPORT INFORMATION
  Report Type: 
  Country: None (occurrence: None)
  Receive Date: 20090327
  Receipt Date: 20090316
  Transmission Date: 20090719
  Serious: Yes (Hospitalization, Other)
  Sender: FDA-Public Use
  Company Number: CO-PFIZER INC-2009187775

PATIENT

DRUGS (1)
  1. DOSTINEX [Suspect]
     Indication: GALACTORRHOEA
     Dosage: 0.25 MG, 1X/DAY
     Route: 048
     Dates: start: 20090203

REACTIONS (4)
  - ANXIETY [None]
  - FEAR [None]
  - PSYCHOTIC DISORDER [None]
  - TACHYCARDIA [None]
